FAERS Safety Report 4930152-6 (Version None)
Quarter: 2006Q1

REPORT INFORMATION
  Report Type: 
  Country: None (occurrence: None)
  Receive Date: 20060302
  Receipt Date: 20060219
  Transmission Date: 20060701
  Serious: Yes (Hospitalization)
  Sender: FDA-Public Use
  Company Number: PHBS2006IL02612

PATIENT
  Age: 52 Year
  Sex: Female

DRUGS (2)
  1. FEMARA [Suspect]
     Indication: BREAST CANCER FEMALE
     Dosage: 2.5 MG/DAY
     Route: 048
     Dates: start: 20050401, end: 20060101
  2. L-THYROXIN [Concomitant]
     Indication: HYPOTHYROIDISM

REACTIONS (2)
  - RETINAL DETACHMENT [None]
  - RETINAL OPERATION [None]
